FAERS Safety Report 16078714 (Version 1)
Quarter: 2019Q1

REPORT INFORMATION
  Report Type: Spontaneous
  Country: US (occurrence: US)
  Receive Date: 20190315
  Receipt Date: 20190315
  Transmission Date: 20190418
  Serious: No
  Sender: FDA-Public Use
  Company Number: US-MILLICENT HOLDINGS LTD.-MILL20190160

PATIENT
  Age: 75 Year
  Sex: Female

DRUGS (4)
  1. RESTASIS [Concomitant]
     Active Substance: CYCLOSPORINE
     Indication: DRY EYE
     Dosage: UNKNOWN
     Route: 047
  2. FLUTICASONE. [Concomitant]
     Active Substance: FLUTICASONE
     Indication: SEASONAL ALLERGY
     Dosage: UNKNOWN
     Route: 045
  3. FEMRING [Suspect]
     Active Substance: ESTRADIOL ACETATE
     Indication: HORMONE REPLACEMENT THERAPY
     Dosage: 0.05 MG/DAY
     Route: 067
     Dates: start: 20180701, end: 20180725
  4. FEMRING [Suspect]
     Active Substance: ESTRADIOL ACETATE
     Indication: HOT FLUSH
     Dosage: UNKNOWN
     Route: 067

REACTIONS (6)
  - Dysmenorrhoea [Recovered/Resolved]
  - Paraesthesia [Recovered/Resolved]
  - Product odour abnormal [None]
  - Vulvovaginal pain [Recovered/Resolved]
  - Product use in unapproved indication [None]
  - Device colour issue [None]

NARRATIVE: CASE EVENT DATE: 201807
